FAERS Safety Report 4340244-0 (Version None)
Quarter: 2004Q1

REPORT INFORMATION
  Report Type: 
  Country: None (occurrence: None)
  Receive Date: 20040329
  Receipt Date: 20040105
  Transmission Date: 20041129
  Serious: No
  Sender: FDA-Public Use
  Company Number: 04P-163-0246174-00

PATIENT
  Age: 82 Year
  Sex: Female
  Weight: 78.0187 kg

DRUGS (8)
  1. HUMIRA [Suspect]
     Indication: RHEUMATOID ARTHRITIS
     Dosage: 40 MG, 1 IN 2 WK, SUBCUTANEOUS
     Route: 058
     Dates: start: 20030801, end: 20030801
  2. HUMIRA [Suspect]
     Indication: RHEUMATOID ARTHRITIS
     Dosage: 40 MG, 1 IN 2 WK, SUBCUTANEOUS
     Route: 058
     Dates: start: 20030901
  3. LEVOTHYROXINE SODIUM [Concomitant]
  4. GLYCERYL TRINITRATE [Concomitant]
  5. PREDNISONE [Concomitant]
  6. CRESTA [Concomitant]
  7. ASPIRIN [Concomitant]
  8. METHOTREXATE [Concomitant]

REACTIONS (2)
  - INFLUENZA LIKE ILLNESS [None]
  - RASH MACULO-PAPULAR [None]
